FAERS Safety Report 6174225-1 (Version None)
Quarter: 2009Q2

REPORT INFORMATION
  Report Type: 
  Country: None (occurrence: None)
  Receive Date: 20090430
  Receipt Date: 20080416
  Transmission Date: 20091009
  Serious: Yes (Hospitalization, Disabling)
  Sender: FDA-Public Use
  Company Number: US-ASTRAZENECA-2008UW05774

PATIENT
  Age: 85 Year
  Sex: Female
  Weight: 59.9 kg

DRUGS (8)
  1. NEXIUM [Suspect]
     Indication: DYSPEPSIA
     Route: 048
     Dates: start: 20080205, end: 20080213
  2. NEXIUM [Suspect]
     Indication: BARRETT'S OESOPHAGUS
     Route: 048
     Dates: start: 20080205, end: 20080213
  3. SYNTHROID [Concomitant]
  4. FOSAMAX [Concomitant]
  5. TREBITON [Concomitant]
  6. LISINOPRIL [Concomitant]
  7. MULTI-VITAMIN [Concomitant]
  8. COUMADIN [Concomitant]

REACTIONS (4)
  - ARTHRALGIA [None]
  - MUSCULOSKELETAL PAIN [None]
  - PAIN [None]
  - PAIN IN EXTREMITY [None]
